FAERS Safety Report 17511602 (Version 5)
Quarter: 2020Q3

REPORT INFORMATION
  Report Type: Spontaneous
  Country: US (occurrence: US)
  Receive Date: 20200308
  Receipt Date: 20200709
  Transmission Date: 20201102
  Serious: Yes (Disabling, Other)
  Sender: FDA-Public Use
  Company Number: NVSC2020US058782

PATIENT
  Age: 90 Year
  Sex: Female

DRUGS (1)
  1. BEOVU [Suspect]
     Active Substance: BROLUCIZUMAB-DBLL
     Indication: PRODUCT USED FOR UNKNOWN INDICATION
     Dosage: UNK
     Route: 065

REACTIONS (10)
  - Anterior chamber flare [Unknown]
  - Eye pain [Unknown]
  - Subretinal fluid [Unknown]
  - Intraocular pressure increased [Unknown]
  - Retinal vasculitis [Recovering/Resolving]
  - Anterior chamber cell [Unknown]
  - Visual acuity reduced [Unknown]
  - Anterior chamber fibrin [Unknown]
  - Vision blurred [Unknown]
  - Cataract [Unknown]

NARRATIVE: CASE EVENT DATE: 20200206
